FAERS Safety Report 10746397 (Version 2)
Quarter: 2015Q2

REPORT INFORMATION
  Report Type: Spontaneous
  Country: US (occurrence: US)
  Receive Date: 20150128
  Receipt Date: 20150421
  Transmission Date: 20150821
  Serious: No
  Sender: FDA-Public Use
  Company Number: US-009507513-1501USA010542

PATIENT
  Age: 59 Year
  Sex: Male
  Weight: 117.91 kg

DRUGS (1)
  1. NEXPLANON [Suspect]
     Active Substance: ETONOGESTREL

REACTIONS (4)
  - Injury associated with device [Recovered/Resolved]
  - Skin injury [Recovered/Resolved]
  - Haemorrhage [Recovered/Resolved]
  - Product quality issue [Unknown]

NARRATIVE: CASE EVENT DATE: 20150116
